FAERS Safety Report 17509621 (Version 1)
Quarter: 2020Q1

REPORT INFORMATION
  Report Type: Spontaneous
  Country: US (occurrence: US)
  Receive Date: 20200226
  Receipt Date: 20200226
  Transmission Date: 20200409
  Serious: No
  Sender: FDA-Public Use
  Company Number: None

PATIENT
  Age: 64 Year
  Sex: Female

DRUGS (1)
  1. IBRANCE [Suspect]
     Active Substance: PALBOCICLIB
     Indication: BREAST CANCER
     Dosage: ?          OTHER DOSE:125MG QD FOR 21DAY;OTHER FREQUENCY:OTHER;?
     Route: 048
     Dates: start: 201910

REACTIONS (3)
  - Pain [None]
  - Lymphoedema [None]
  - Influenza like illness [None]

NARRATIVE: CASE EVENT DATE: 20200226
